FAERS Safety Report 15461040 (Version 23)
Quarter: 2019Q3

REPORT INFORMATION
  Report Type: Spontaneous
  Country: FR (occurrence: FR)
  Receive Date: 20181003
  Receipt Date: 20190910
  Transmission Date: 20191004
  Serious: Yes (Life-Threatening, Other)
  Sender: FDA-Public Use
  Company Number: FR-PFIZER INC-2018397714

PATIENT
  Age: 69 Year
  Sex: Male
  Weight: 66 kg

DRUGS (23)
  1. LANSOPRAZOLE. [Suspect]
     Active Substance: LANSOPRAZOLE
     Dosage: 1 DF, 1X/DAY
     Route: 065
  2. LANSOPRAZOLE. [Suspect]
     Active Substance: LANSOPRAZOLE
     Dosage: UNK UNK, QD
     Route: 065
  3. TRAMADOL HYDROCHLORIDE. [Suspect]
     Active Substance: TRAMADOL HYDROCHLORIDE
     Indication: PAIN
     Dosage: UNK, 1X/DAY (QD)
  4. TRAMADOL HYDROCHLORIDE. [Suspect]
     Active Substance: TRAMADOL HYDROCHLORIDE
     Dosage: 400 MILLIGRAM, QD
     Route: 048
     Dates: start: 201604, end: 201806
  5. VALACICLOVIR HYDROCHLORIDE [Suspect]
     Active Substance: VALACYCLOVIR HYDROCHLORIDE
     Indication: INFECTION PROPHYLAXIS
     Dosage: 500 MG, 1X/DAY
     Route: 048
     Dates: end: 201806
  6. FOLIC ACID. [Suspect]
     Active Substance: FOLIC ACID
     Dosage: UNK
     Route: 065
  7. BACTRIM [Suspect]
     Active Substance: SULFAMETHOXAZOLE\TRIMETHOPRIM
     Indication: PNEUMOCYSTIS JIROVECII PNEUMONIA
     Dosage: 1 DF, 1X/DAY (QD)
     Route: 048
     Dates: end: 201806
  8. BACTRIM [Suspect]
     Active Substance: SULFAMETHOXAZOLE\TRIMETHOPRIM
     Dosage: 2 DF, 3X/DAYC(TID)
     Route: 065
  9. LACTULOSE. [Suspect]
     Active Substance: LACTULOSE
     Dosage: 2 DF, 1X/DAY
     Route: 065
  10. TRAMADOL HYDROCHLORIDE. [Suspect]
     Active Substance: TRAMADOL HYDROCHLORIDE
     Dosage: 200 MG, 1X/DAY
     Route: 048
     Dates: end: 201806
  11. ELIQUIS [Suspect]
     Active Substance: APIXABAN
     Dosage: 1 DF, 2X/DAY (BID)
     Route: 065
  12. BACLOFEN. [Suspect]
     Active Substance: BACLOFEN
     Dosage: 1 DF, 1X/DAY
     Route: 065
  13. PREGABALIN. [Suspect]
     Active Substance: PREGABALIN
     Dosage: 1 DF, 1X/DAY (QD)
     Route: 065
  14. PARACETAMOL [Suspect]
     Active Substance: ACETAMINOPHEN
     Dosage: 1 DF, 1X/DAY (QD)
     Route: 065
  15. VESICARE [Suspect]
     Active Substance: SOLIFENACIN SUCCINATE
     Indication: URINARY INCONTINENCE
     Dosage: 10 MG, 1X/DAY (QD)
     Route: 048
  16. PARACETAMOL [Suspect]
     Active Substance: ACETAMINOPHEN
     Dosage: 1 DF, 3X/DAY (TID)
     Route: 065
  17. ZOPICLONE [Suspect]
     Active Substance: ZOPICLONE
     Dosage: 1 DF, 1X/DAY
     Route: 065
  18. NEOFORDEX [Suspect]
     Active Substance: DEXAMETHASONE ACETATE
     Dosage: 1 DF, WEEKLY
     Route: 065
  19. BACLOFEN. [Suspect]
     Active Substance: BACLOFEN
     Dosage: 2 DF, TID
     Route: 065
  20. BACLOFEN. [Suspect]
     Active Substance: BACLOFEN
     Dosage: UNK, 1X/DAY
     Route: 065
  21. AMOXICILLINE [AMOXICILLIN TRIHYDRATE] [Suspect]
     Active Substance: AMOXICILLIN
     Indication: INFECTION
     Dosage: 1000 MG, 1X/DAY (QD)
     Route: 048
     Dates: end: 201806
  22. ELIQUIS [Suspect]
     Active Substance: APIXABAN
     Dosage: 1 DF, 1X/DAY (QD)
     Route: 065
  23. PREGABALIN. [Suspect]
     Active Substance: PREGABALIN
     Dosage: 1 DF, 2X/DAY (BID)
     Route: 065

REACTIONS (8)
  - Blood pressure decreased [Unknown]
  - Somnolence [Recovered/Resolved]
  - Drug intolerance [Unknown]
  - Overdose [Recovered/Resolved]
  - Confusional state [Recovered/Resolved]
  - Coma [Recovered/Resolved]
  - Epilepsy [Recovered/Resolved]
  - Off label use [Unknown]

NARRATIVE: CASE EVENT DATE: 20180607
